FAERS Safety Report 23152836 (Version 1)
Quarter: 2023Q4

REPORT INFORMATION
  Report Type: Spontaneous
  Country: US (occurrence: US)
  Receive Date: 20231107
  Receipt Date: 20231107
  Transmission Date: 20240110
  Serious: Yes (Hospitalization, Other)
  Sender: FDA-Public Use
  Company Number: US-Accord-388310

PATIENT
  Sex: Female

DRUGS (2)
  1. CISPLATIN [Suspect]
     Active Substance: CISPLATIN
     Indication: Adenosquamous carcinoma of the cervix
     Dosage: WEEKLY
  2. CISPLATIN [Suspect]
     Active Substance: CISPLATIN
     Indication: Cervix carcinoma stage II
     Dosage: WEEKLY

REACTIONS (3)
  - Sepsis [Unknown]
  - Pancreatitis [Unknown]
  - Off label use [Unknown]
